FAERS Safety Report 25785386 (Version 1)
Quarter: 2025Q3

REPORT INFORMATION
  Report Type: Spontaneous
  Country: US (occurrence: US)
  Receive Date: 20250910
  Receipt Date: 20250910
  Transmission Date: 20251020
  Serious: No
  Sender: RECKITT BENCKISER
  Company Number: US-PROD-AS2-212756134-20-24-USA-RB-0004394

PATIENT
  Age: 69 Year
  Sex: Female
  Weight: 108.41 kg

DRUGS (1)
  1. MUCINEX MAXIMUM STRENGTH [Suspect]
     Active Substance: GUAIFENESIN
     Indication: Product used for unknown indication
     Route: 048
     Dates: start: 20240726, end: 20240726

REACTIONS (1)
  - Accidental overdose [Recovered/Resolved with Sequelae]

NARRATIVE: CASE EVENT DATE: 20240726
